FAERS Safety Report 8380180-6 (Version None)
Quarter: 2012Q2

REPORT INFORMATION
  Report Type: 
  Country: None (occurrence: None)
  Receive Date: 20120523
  Receipt Date: 20120519
  Transmission Date: 20120825
  Serious: Yes (Other)
  Sender: FDA-Public Use
  Company Number: US-PFIZER INC-2012121532

PATIENT
  Sex: Female
  Weight: 76.19 kg

DRUGS (8)
  1. OXYCONTIN [Concomitant]
     Dosage: UNK
  2. LYRICA [Suspect]
     Dosage: UNK
     Route: 048
  3. DIGOXIN [Concomitant]
     Dosage: UNK
  4. LYRICA [Suspect]
     Dosage: 225 MG, 2X/DAY
     Route: 048
  5. RANITIDINE [Concomitant]
     Dosage: UNK
  6. LYRICA [Suspect]
     Indication: NECK PAIN
     Dosage: TWO CAPSULES OF 75 MG IN THE MORNING AND ONE CAPSULE OF 75 MG AT NIGHT
     Route: 048
  7. LYRICA [Suspect]
     Dosage: TWO CAPSULES OF 75 MG IN MORNING AND TWO CAPSULES OF 75 MG AT NIGHT
     Route: 048
  8. LYRICA [Suspect]
     Dosage: 150 MG, 2X/DAY
     Route: 048

REACTIONS (10)
  - FALL [None]
  - FEELING ABNORMAL [None]
  - ABDOMINAL DISTENSION [None]
  - INTERVERTEBRAL DISC PROTRUSION [None]
  - SWELLING [None]
  - BACK PAIN [None]
  - ASTHENIA [None]
  - DEPRESSION [None]
  - BALANCE DISORDER [None]
  - WEIGHT INCREASED [None]
